FAERS Safety Report 4539549-X (Version None)
Quarter: 2004Q4

REPORT INFORMATION
  Report Type: 
  Country: None (occurrence: None)
  Receive Date: 20041227
  Receipt Date: 20041227
  Transmission Date: 20050328
  Serious: Yes (Other)
  Sender: FDA-Public Use
  Company Number: None

PATIENT
  Sex: Male
  Weight: 80.7403 kg

DRUGS (2)
  1. ZOCOR [Suspect]
     Indication: HYPERLIPIDAEMIA
     Dosage: PO ONCE DAILY
     Route: 048
     Dates: start: 20040525, end: 20041123
  2. GLYBURIDE [Concomitant]

REACTIONS (1)
  - HEADACHE [None]
